FAERS Safety Report 10020756 (Version 1)
Quarter: 2014Q1

REPORT INFORMATION
  Report Type: Spontaneous
  Country: IT (occurrence: IT)
  Receive Date: 20140319
  Receipt Date: 20140319
  Transmission Date: 20141002
  Serious: Yes (Other)
  Sender: FDA-Public Use
  Company Number: IT-ACCORD-022614

PATIENT
  Age: 54 Year
  Sex: Female

DRUGS (2)
  1. PACLITAXEL/PACLITAXEL LIPOSOME [Suspect]
     Indication: BREAST CANCER
     Route: 042
     Dates: start: 20130130
  2. HERCEPTIN [Suspect]
     Indication: BREAST CANCER
     Dosage: HERCEPTIN 150 MG POWDER FOR CONCENTRATE FOR SOLUTION FOR INFUSION
     Route: 042
     Dates: start: 20130130

REACTIONS (3)
  - Arthralgia [Recovered/Resolved]
  - Asthenia [Recovered/Resolved]
  - Cystitis [Recovered/Resolved]
